FAERS Safety Report 4284647-1 (Version None)
Quarter: 2004Q1

REPORT INFORMATION
  Report Type: 
  Country: None (occurrence: None)
  Receive Date: 20040130
  Receipt Date: 20040130
  Transmission Date: 20041129
  Serious: Yes (Other)
  Sender: FDA-Public Use
  Company Number: None

PATIENT
  Age: 74 Year
  Sex: Male

DRUGS (4)
  1. LINEZOLID [Suspect]
  2. HEPARIN [Concomitant]
  3. WARFARIN SODIUM [Concomitant]
  4. XIGRIS [Concomitant]

REACTIONS (1)
  - THROMBOCYTOPENIA [None]
